FAERS Safety Report 9516034 (Version 3)
Quarter: 2013Q4

REPORT INFORMATION
  Report Type: Spontaneous
  Country: JP (occurrence: JP)
  Receive Date: 20130911
  Receipt Date: 20131224
  Transmission Date: 20140711
  Serious: Yes (Hospitalization, Disabling)
  Sender: FDA-Public Use
  Company Number: JP-009507513-1309JPN003389

PATIENT
  Age: 62 Year
  Sex: Male

DRUGS (4)
  1. GLACTIV [Suspect]
     Indication: TYPE 2 DIABETES MELLITUS
     Dosage: 50 MG, QD
     Route: 048
     Dates: start: 20121221, end: 20130903
  2. BAYASPIRIN [Concomitant]
     Dosage: UNK
     Dates: start: 201108
  3. DIOVAN [Concomitant]
  4. FAMOTIDINE [Concomitant]

REACTIONS (1)
  - Interstitial lung disease [Recovering/Resolving]
